FAERS Safety Report 5762231-8 (Version None)
Quarter: 2008Q2

REPORT INFORMATION
  Report Type: 
  Country: None (occurrence: None)
  Receive Date: 20080609
  Receipt Date: 20080507
  Transmission Date: 20081010
  Serious: No
  Sender: FDA-Public Use
  Company Number: US-BAYER-200813050NA

PATIENT
  Age: 27 Year
  Sex: Female
  Weight: 94 kg

DRUGS (9)
  1. MIRENA [Suspect]
     Indication: CONTRACEPTION
     Route: 015
     Dates: start: 20070926
  2. TRICOR [Concomitant]
  3. GEODON [Concomitant]
  4. SEROQUEL [Concomitant]
  5. LITHIUM CARBONATE [Concomitant]
  6. BUSPAR [Concomitant]
  7. LEXAPRO [Concomitant]
  8. LAMICTAL [Concomitant]
  9. TOPAMAX [Concomitant]

REACTIONS (3)
  - AMENORRHOEA [None]
  - PROCEDURAL PAIN [None]
  - SMEAR CERVIX ABNORMAL [None]
